FAERS Safety Report 16398947 (Version 1)
Quarter: 2019Q2

REPORT INFORMATION
  Report Type: Report from Study
  Country: GB (occurrence: GB)
  Receive Date: 20190606
  Receipt Date: 20190606
  Transmission Date: 20190711
  Serious: Yes (Other)
  Sender: FDA-Public Use
  Company Number: GB-MYLANLABS-2019M1052878

PATIENT
  Sex: Female

DRUGS (9)
  1. VITAMIN C [Concomitant]
     Active Substance: ASCORBIC ACID
     Dosage: UNK
  2. BRABIO [Suspect]
     Active Substance: GLATIRAMER ACETATE
     Indication: MULTIPLE SCLEROSIS
     Dosage: 40 MILLIGRAM, 3XW
     Route: 058
     Dates: start: 20181218
  3. PARACETAMOL [Concomitant]
     Active Substance: ACETAMINOPHEN
  4. VITAMIN B [Concomitant]
     Active Substance: VITAMIN B
  5. DIAZEPAM. [Concomitant]
     Active Substance: DIAZEPAM
  6. NAPROXEN. [Concomitant]
     Active Substance: NAPROXEN
  7. ADCAL                              /00056901/ [Concomitant]
     Active Substance: CARBAZOCHROME
  8. COCODAMOL [Concomitant]
     Active Substance: ACETAMINOPHEN\CODEINE PHOSPHATE
  9. CLOMIPHENE                         /00061301/ [Concomitant]
     Active Substance: CLOMIPHENE

REACTIONS (2)
  - Multiple sclerosis relapse [Unknown]
  - Intestinal obstruction [Unknown]

NARRATIVE: CASE EVENT DATE: 201904
